FAERS Safety Report 12500893 (Version 1)
Quarter: 2016Q2

REPORT INFORMATION
  Report Type: Spontaneous
  Country: TR (occurrence: TR)
  Receive Date: 20160627
  Receipt Date: 20160627
  Transmission Date: 20160815
  Serious: Yes (Hospitalization, Other)
  Sender: FDA-Public Use
  Company Number: TR-JUBILANT CADISTA PHARMACEUTICALS-2016JUB00228

PATIENT
  Age: 4 Year
  Sex: Male

DRUGS (2)
  1. RISPERIDONE. [Suspect]
     Active Substance: RISPERIDONE
     Indication: OPPOSITIONAL DEFIANT DISORDER
     Dosage: 0.5 CM^3/DAY
     Route: 042
  2. RISPERIDONE. [Suspect]
     Active Substance: RISPERIDONE
     Dosage: 15 MG, ONCE
     Route: 042

REACTIONS (5)
  - Dystonia [Recovered/Resolved]
  - Opisthotonus [Recovered/Resolved]
  - Cogwheel rigidity [Recovered/Resolved]
  - Overdose [Recovered/Resolved]
  - Toxicity to various agents [Recovered/Resolved]
